FAERS Safety Report 4371975-4 (Version None)
Quarter: 2004Q2

REPORT INFORMATION
  Report Type: 
  Country: None (occurrence: None)
  Receive Date: 20040603
  Receipt Date: 20040603
  Transmission Date: 20050107
  Serious: Yes (Other)
  Sender: FDA-Public Use
  Company Number: None

PATIENT
  Sex: Male
  Weight: 68.0396 kg

DRUGS (1)
  1. PRAVACHOL [Suspect]
     Indication: BLOOD CHOLESTEROL INCREASED
     Dosage: 20 MG DAILY ORAL
     Route: 048
     Dates: start: 19990601, end: 20000601

REACTIONS (5)
  - ARTHROPATHY [None]
  - JOINT CREPITATION [None]
  - JOINT LOCK [None]
  - MASS [None]
  - MUSCLE DISORDER [None]
